FAERS Safety Report 17999320 (Version 1)
Quarter: 2020Q3

REPORT INFORMATION
  Report Type: Spontaneous
  Country: ES (occurrence: ES)
  Receive Date: 20200709
  Receipt Date: 20200709
  Transmission Date: 20201103
  Serious: Yes (Hospitalization)
  Sender: FDA-Public Use
  Company Number: NVSC2020ES185497

PATIENT
  Age: 43 Year
  Sex: Female

DRUGS (8)
  1. FUROSEMIDE. [Suspect]
     Active Substance: FUROSEMIDE
     Indication: PRODUCT USED FOR UNKNOWN INDICATION
     Dosage: 40 MG, QD
     Route: 048
     Dates: start: 201909, end: 20200512
  2. HIGROTONA [Interacting]
     Active Substance: CHLORTHALIDONE
     Indication: HYPERTENSION
     Dosage: 50 MG, QD (COMPRIMIDOS, 30 COMPRIMIDOS)
     Route: 048
     Dates: start: 20200426, end: 20200512
  3. PREGABALIN. [Interacting]
     Active Substance: PREGABALIN
     Indication: PRODUCT USED FOR UNKNOWN INDICATION
     Dosage: 150 MG, Q8H
     Route: 048
     Dates: start: 201901
  4. PREGABALIN. [Interacting]
     Active Substance: PREGABALIN
     Dosage: 150 MG, Q8H
     Route: 048
     Dates: start: 20200512
  5. ENALAPRIL MALEATE. [Interacting]
     Active Substance: ENALAPRIL MALEATE
     Indication: HYPERTENSION
     Dosage: 10 MG, Q12H
     Route: 048
     Dates: start: 202001, end: 20200512
  6. NAPROXENO [Interacting]
     Active Substance: NAPROXEN
     Indication: INTERVERTEBRAL DISC DISORDER
     Dosage: 500 MG, QD
     Route: 048
     Dates: start: 201910, end: 20200512
  7. MELATONINA [Concomitant]
     Active Substance: MELATONIN
     Indication: INSOMNIA
     Dosage: 1.9 MG, QD (OP3063 ? MELADISPERT FORTE MELATONINA 1,9 MG LIBERACI?N PROLONGADA (DIETET))
     Route: 048
     Dates: start: 20200505, end: 20200512
  8. MIRTAZAPINA [Concomitant]
     Active Substance: MIRTAZAPINE
     Indication: ANXIETY DISORDER
     Dosage: 30 MG, QD
     Route: 048
     Dates: start: 201912, end: 20200505

REACTIONS (1)
  - Acute kidney injury [Recovering/Resolving]

NARRATIVE: CASE EVENT DATE: 20200512
